FAERS Safety Report 8270256-6 (Version None)
Quarter: 2012Q1

REPORT INFORMATION
  Report Type: 
  Country: None (occurrence: None)
  Receive Date: 20120327
  Receipt Date: 20100309
  Transmission Date: 20120608
  Serious: Yes (Hospitalization)
  Sender: FDA-Public Use
  Company Number: PHHY2010US07634

PATIENT
  Age: 83 Year
  Sex: Female
  Weight: 60 kg

DRUGS (5)
  1. GLEEVEC [Suspect]
     Indication: CHRONIC MYELOID LEUKAEMIA
     Dosage: 400 MG, QD, ORAL
     Route: 048
     Dates: start: 20091125, end: 20100213
  2. SYNTHROID [Concomitant]
  3. STATIN [Concomitant]
  4. LISINOPRIL [Concomitant]
  5. ARIMIDEX [Concomitant]

REACTIONS (8)
  - DRUG HYPERSENSITIVITY [None]
  - EYELID OEDEMA [None]
  - SKIN EXFOLIATION [None]
  - RASH GENERALISED [None]
  - OEDEMA PERIPHERAL [None]
  - NAUSEA [None]
  - TREMOR [None]
  - CHILLS [None]
